FAERS Safety Report 21260524 (Version 1)
Quarter: 2022Q3

REPORT INFORMATION
  Report Type: Spontaneous
  Country: AL (occurrence: AL)
  Receive Date: 20220826
  Receipt Date: 20220826
  Transmission Date: 20221026
  Serious: Yes (Other)
  Sender: FDA-Public Use
  Company Number: AL-GLAXOSMITHKLINE-AL2022GSK122512

PATIENT

DRUGS (3)
  1. LAMIVUDINE [Suspect]
     Active Substance: LAMIVUDINE
     Indication: HIV infection CDC category C
     Dosage: UNK
  2. ABACAVIR [Suspect]
     Active Substance: ABACAVIR
     Indication: HIV infection CDC category C
     Dosage: UNK
  3. EFAVIRENZ [Suspect]
     Active Substance: EFAVIRENZ
     Indication: HIV infection CDC category C
     Dosage: UNK

REACTIONS (19)
  - Immune reconstitution inflammatory syndrome [Recovered/Resolved]
  - Pyrexia [Recovered/Resolved]
  - Hyperhidrosis [Recovered/Resolved]
  - Fatigue [Recovered/Resolved]
  - Weight decreased [Recovered/Resolved]
  - Lethargy [Recovered/Resolved]
  - Lymphadenopathy [Recovered/Resolved]
  - Hepatomegaly [Recovered/Resolved]
  - Splenomegaly [Recovered/Resolved]
  - Pancytopenia [Recovered/Resolved]
  - Visceral leishmaniasis [Recovered/Resolved]
  - Hepatosplenomegaly [Recovered/Resolved]
  - Rash maculo-papular [Recovered/Resolved]
  - Blister [Recovered/Resolved]
  - Pustule [Recovered/Resolved]
  - Scab [Recovered/Resolved]
  - Herpes zoster [Recovered/Resolved]
  - Skin lesion [Recovered/Resolved]
  - Abdominal distension [Recovered/Resolved]
